FAERS Safety Report 8855234 (Version 1)
Quarter: 2012Q4

REPORT INFORMATION
  Report Type: 
  Country: US (occurrence: US)
  Receive Date: 20121023
  Receipt Date: 20121023
  Transmission Date: 20130627
  Serious: No
  Sender: FDA-Public Use
  Company Number: US-AMGEN-USASP2012059974

PATIENT
  Age: 52 Year
  Sex: Female
  Weight: 80.73 kg

DRUGS (7)
  1. ENBREL [Suspect]
     Indication: PRODUCT USED FOR UNKNOWN INDICATION
     Dosage: 50 mg, qwk
     Route: 058
  2. ATENOLOL [Concomitant]
     Dosage: 25 mg, UNK
  3. ALLEGRA [Concomitant]
     Dosage: 60 mg, UNK
  4. NASONEX [Concomitant]
     Dosage: 50 mug/AC, UNK
  5. CALCIUM [Concomitant]
     Dosage: 500 UNK, UNK
  6. FISH OIL [Concomitant]
     Dosage: 1000 mg, UNK
  7. MULTIVITAMIN                       /00097801/ [Concomitant]
     Dosage: UNK

REACTIONS (1)
  - Sinusitis [Unknown]
